FAERS Safety Report 14905406 (Version 1)
Quarter: 2018Q2

REPORT INFORMATION
  Report Type: Spontaneous
  Country: US (occurrence: US)
  Receive Date: 20180517
  Receipt Date: 20180517
  Transmission Date: 20180711
  Serious: No
  Sender: FDA-Public Use
  Company Number: US-SA-2018SA002708

PATIENT
  Sex: Female

DRUGS (6)
  1. SOLOSTAR [Suspect]
     Active Substance: DEVICE
  2. SOLOSTAR [Suspect]
     Active Substance: DEVICE
     Dates: start: 201708
  3. LANTUS SOLOSTAR [Suspect]
     Active Substance: INSULIN GLARGINE
     Dosage: DOSE:8 UNIT(S)
     Route: 051
     Dates: start: 201708
  4. LANTUS SOLOSTAR [Suspect]
     Active Substance: INSULIN GLARGINE
     Dosage: DOSE:26 UNIT(S)
     Route: 051
     Dates: start: 201710
  5. LANTUS SOLOSTAR [Suspect]
     Active Substance: INSULIN GLARGINE
     Dosage: DOSE IS 36-46 UNITS DAILY WITH AN ADDITIONAL INCREASE OF 2 UNITS EVERY THIRD DAY
     Route: 051
  6. SOLOSTAR [Suspect]
     Active Substance: DEVICE
     Dates: start: 201710

REACTIONS (3)
  - Blood glucose increased [Unknown]
  - Malaise [Unknown]
  - Drug ineffective [Unknown]
